FAERS Safety Report 20689362 (Version 1)
Quarter: 2022Q2

REPORT INFORMATION
  Report Type: Report from Study
  Country: US (occurrence: US)
  Receive Date: 20220408
  Receipt Date: 20220408
  Transmission Date: 20220721
  Serious: Yes (Other)
  Sender: FDA-Public Use
  Company Number: US-MYLANLABS-2022M1025812

PATIENT
  Age: 70 Year
  Sex: Male
  Weight: 103 kg

DRUGS (2)
  1. WARFARIN [Suspect]
     Active Substance: WARFARIN
     Indication: Anticoagulant therapy
     Dosage: UNK
     Route: 065
  2. ENOXAPARIN [Suspect]
     Active Substance: ENOXAPARIN
     Indication: Anticoagulant therapy
     Dosage: UNK
     Route: 065

REACTIONS (5)
  - Post procedural haematoma [Unknown]
  - Haematoma muscle [Unknown]
  - Paraplegia [Unknown]
  - Haemoglobin decreased [Recovering/Resolving]
  - Presyncope [Unknown]
